FAERS Safety Report 5311083-9 (Version None)
Quarter: 2007Q2

REPORT INFORMATION
  Report Type: 
  Country: None (occurrence: None)
  Receive Date: 20070430
  Receipt Date: 20070426
  Transmission Date: 20071010
  Serious: Yes (Hospitalization, Disabling, Other)
  Sender: FDA-Public Use
  Company Number: US-BAYER-200710540BCC

PATIENT
  Sex: Female
  Weight: 109 kg

DRUGS (1)
  1. NEO-SYNEPHRINE REGULAR STRENGTH 1/2% SPRAY [Suspect]
     Indication: SINUS DISORDER
     Route: 045

REACTIONS (5)
  - ANEURYSM [None]
  - CEREBROVASCULAR ACCIDENT [None]
  - DISABILITY [None]
  - HEADACHE [None]
  - SINUS DISORDER [None]
